FAERS Safety Report 24066155 (Version 1)
Quarter: 2024Q3

REPORT INFORMATION
  Report Type: Spontaneous
  Country: FR (occurrence: None)
  Receive Date: 20240709
  Receipt Date: 20240709
  Transmission Date: 20241017
  Serious: Yes (Death, Life-Threatening, Other)
  Sender: ASTRAZENECA
  Company Number: 2024A156094

PATIENT
  Age: 67 Year
  Sex: Female
  Weight: 45 kg

DRUGS (1)
  1. DURVALUMAB [Suspect]
     Active Substance: DURVALUMAB
     Indication: Non-small cell lung cancer

REACTIONS (4)
  - Malignant neoplasm progression [Fatal]
  - Hepatic cancer [Unknown]
  - Haematotoxicity [Unknown]
  - Asthenia [Unknown]
